FAERS Safety Report 5284690-X (Version None)
Quarter: 2007Q1

REPORT INFORMATION
  Report Type: 
  Country: None (occurrence: None)
  Receive Date: 20061222
  Receipt Date: 20061016
  Transmission Date: 20070707
  Serious: Yes (Other)
  Sender: FDA-Public Use
  Company Number: CHPA2006US10556

PATIENT
  Age: 54 Year
  Sex: Female
  Weight: 61.7 kg

DRUGS (1)
  1. TRANSDERM SCOP [Suspect]
     Indication: PROPHYLAXIS AGAINST MOTION SICKNESS
     Dosage: 1.5 MG, Q72H, TRANSDERMAL
     Route: 062
     Dates: start: 20061004, end: 20061007

REACTIONS (6)
  - AMNESIA [None]
  - DISORIENTATION [None]
  - FATIGUE [None]
  - HEADACHE [None]
  - NAUSEA [None]
  - VISION BLURRED [None]
